FAERS Safety Report 12744127 (Version 2)
Quarter: 2016Q3

REPORT INFORMATION
  Report Type: Spontaneous
  Country: US (occurrence: US)
  Receive Date: 20160914
  Receipt Date: 20160919
  Transmission Date: 20161109
  Serious: No
  Sender: FDA-Public Use
  Company Number: US-009507513-1608USA013292

PATIENT
  Age: 25 Year
  Sex: Female
  Weight: 122.9 kg

DRUGS (2)
  1. NEXPLANON [Suspect]
     Active Substance: ETONOGESTREL
     Dosage: 1 ROD
     Route: 059
  2. NEXPLANON [Suspect]
     Active Substance: ETONOGESTREL
     Dosage: 68 MG, EVERY 3 YEARS
     Route: 059

REACTIONS (2)
  - No adverse event [Unknown]
  - Device breakage [Recovered/Resolved]
